FAERS Safety Report 5993886-0 (Version None)
Quarter: 2008Q4

REPORT INFORMATION
  Report Type: 
  Country: None (occurrence: None)
  Receive Date: 20081212
  Receipt Date: 20081009
  Transmission Date: 20090506
  Serious: No
  Sender: FDA-Public Use
  Company Number: US-ABBOTT-08P-163-0457813-00

PATIENT
  Sex: Female
  Weight: 89.892 kg

DRUGS (10)
  1. HUMIRA [Suspect]
     Indication: PSORIASIS
     Route: 058
     Dates: start: 20080603, end: 20080603
  2. HUMIRA [Suspect]
     Route: 058
     Dates: start: 20080610, end: 20080610
  3. HUMIRA [Suspect]
     Route: 058
     Dates: start: 20080601
  4. ESTRADIOL [Concomitant]
     Indication: HORMONE REPLACEMENT THERAPY
     Route: 048
  5. PAROXETINE HCL [Concomitant]
     Indication: DEPRESSION
     Route: 048
  6. BUPROPION HCL [Concomitant]
     Indication: DEPRESSION
     Route: 048
  7. ESOMEPRAZOLE MAGNESIUM [Concomitant]
     Indication: GASTROOESOPHAGEAL REFLUX DISEASE
     Route: 048
  8. ALPRAZOLAM [Concomitant]
     Indication: INSOMNIA
     Route: 048
  9. VITAMINS [Concomitant]
     Indication: VITAMIN SUPPLEMENTATION
     Route: 048
  10. IBUPROFEN [Concomitant]
     Indication: PAIN
     Route: 048

REACTIONS (7)
  - CONTUSION [None]
  - INJECTION SITE ERYTHEMA [None]
  - INJECTION SITE PRURITUS [None]
  - INJECTION SITE REACTION [None]
  - RASH ERYTHEMATOUS [None]
  - RASH PRURITIC [None]
  - URTICARIA [None]
